FAERS Safety Report 16003604 (Version 1)
Quarter: 2019Q1

REPORT INFORMATION
  Report Type: Spontaneous
  Country: US (occurrence: US)
  Receive Date: 20190225
  Receipt Date: 20190225
  Transmission Date: 20190418
  Serious: Yes (Hospitalization, Other)
  Sender: FDA-Public Use
  Company Number: US-PRINSTON PHARMACEUTICAL INC.-2019PRN00175

PATIENT
  Age: 73 Year
  Sex: Female
  Weight: 89.8 kg

DRUGS (2)
  1. METFORMIN [Concomitant]
     Active Substance: METFORMIN HYDROCHLORIDE
  2. IRBESARTAN AND HYDROCHLOROTHIAZIDE [Suspect]
     Active Substance: HYDROCHLOROTHIAZIDE\IRBESARTAN
     Indication: HYPERTENSION
     Dosage: 1 TABLETS, 1X/DAY
     Route: 048
     Dates: start: 2018, end: 2019

REACTIONS (11)
  - Vision blurred [Not Recovered/Not Resolved]
  - Swelling [Recovering/Resolving]
  - Amnesia [Unknown]
  - Atypical pneumonia [Unknown]
  - Abdominal discomfort [Unknown]
  - Rash pruritic [Not Recovered/Not Resolved]
  - Blood pressure increased [Unknown]
  - Skin lesion [Recovering/Resolving]
  - Pain [Recovering/Resolving]
  - Vomiting [Unknown]
  - Dizziness [Unknown]

NARRATIVE: CASE EVENT DATE: 201812
